FAERS Safety Report 6429884-2 (Version None)
Quarter: 2009Q4

REPORT INFORMATION
  Report Type: 
  Country: None (occurrence: None)
  Receive Date: 20091106
  Receipt Date: 20091030
  Transmission Date: 20100525
  Serious: Yes (Other)
  Sender: FDA-Public Use
  Company Number: GB-ASTRAZENECA-2009SE23515

PATIENT
  Age: 63 Year
  Sex: Female

DRUGS (4)
  1. QUETIAPINE [Suspect]
     Indication: MANIA
     Route: 048
     Dates: end: 20070122
  2. DEPAKOTE [Suspect]
     Indication: MANIA
     Route: 048
     Dates: start: 20061120, end: 20070122
  3. ASPIRIN [Concomitant]
     Indication: ATRIAL FIBRILLATION
     Route: 048
  4. DIGOXIN [Concomitant]
     Indication: ATRIAL FIBRILLATION
     Route: 048

REACTIONS (3)
  - BLEEDING TIME PROLONGED [None]
  - NEUTROPENIA [None]
  - THROMBOCYTOPENIA [None]
